FAERS Safety Report 12720138 (Version 1)
Quarter: 2016Q3

REPORT INFORMATION
  Report Type: Spontaneous
  Country: US (occurrence: US)
  Receive Date: 20160906
  Receipt Date: 20160906
  Transmission Date: 20161109
  Serious: No
  Sender: FDA-Public Use
  Company Number: None

PATIENT
  Age: 59 Year
  Sex: Male

DRUGS (33)
  1. ALBUTEROL. [Concomitant]
     Active Substance: ALBUTEROL
  2. VITAMIN B COMPLEX [Concomitant]
     Active Substance: CYANOCOBALAMIN\DEXPANTHENOL\NIACINAMIDE\PYRIDOXINE HYDROCHLORIDE\RIBOFLAVIN 5^-PHOSPHATE SODIUM\THIAMINE HYDROCHLORIDE\VITAMIN B COMPLEX
  3. ONDANSETRON [Concomitant]
     Active Substance: ONDANSETRON
  4. VITAMIN C [Concomitant]
     Active Substance: ASCORBIC ACID
  5. CLOTRIMAZOLE. [Concomitant]
     Active Substance: CLOTRIMAZOLE
  6. FISH OIL [Concomitant]
     Active Substance: FISH OIL
  7. OXYCODONE [Concomitant]
     Active Substance: OXYCODONE
  8. PROAIR HFA [Concomitant]
     Active Substance: ALBUTEROL SULFATE
  9. ATENOLOL. [Concomitant]
     Active Substance: ATENOLOL
  10. IRON [Concomitant]
     Active Substance: IRON
  11. SENNA [Concomitant]
     Active Substance: SENNA LEAF\SENNOSIDES\SENNOSIDES A AND B
  12. DEXAMETHASONE. [Concomitant]
     Active Substance: DEXAMETHASONE
  13. PREPARATION H NOS [Concomitant]
     Active Substance: COCOA BUTTER\PETROLATUM\PHENYLEPHRINE HYDROCHLORIDE\PHENYLEPHRINE HYDROCHLORIDE OR MINERAL OIL
  14. FUROSEMIDE. [Concomitant]
     Active Substance: FUROSEMIDE
  15. ZOMETA [Concomitant]
     Active Substance: ZOLEDRONIC ACID
  16. DICLOFENAC [Concomitant]
     Active Substance: DICLOFENAC
  17. DOXYCYCL HYC [Concomitant]
  18. FLOMAX [Concomitant]
     Active Substance: TAMSULOSIN HYDROCHLORIDE
  19. INLYTA [Suspect]
     Active Substance: AXITINIB
     Indication: BONE CANCER
     Route: 048
     Dates: start: 201605
  20. ALLOPURINOL. [Concomitant]
     Active Substance: ALLOPURINOL
  21. CHLORHEX GLU SOL [Concomitant]
  22. CYPROHEPTAD [Concomitant]
  23. LEVOTHYROXINE. [Concomitant]
     Active Substance: LEVOTHYROXINE
  24. OLOPATADINE DROP [Concomitant]
  25. SPIRONOLACTONE. [Concomitant]
     Active Substance: SPIRONOLACTONE
  26. AMITIZA [Concomitant]
     Active Substance: LUBIPROSTONE
  27. BREO ELLIPTA [Concomitant]
     Active Substance: FLUTICASONE FUROATE\VILANTEROL TRIFENATATE
  28. CENTRUM [Concomitant]
     Active Substance: VITAMINS
  29. CYCLOBENZAPRINE [Concomitant]
     Active Substance: CYCLOBENZAPRINE
  30. LIOTHYRONINE [Concomitant]
     Active Substance: LIOTHYRONINE
  31. OMEPRAZOLE. [Concomitant]
     Active Substance: OMEPRAZOLE
  32. TAMSULOSIN [Concomitant]
     Active Substance: TAMSULOSIN
  33. ZOSTRIX ORIGINAL STRENGTH [Concomitant]
     Active Substance: CAPSAICIN

REACTIONS (4)
  - Thyroid disorder [None]
  - Flatulence [None]
  - Hypertension [None]
  - Dehydration [None]

NARRATIVE: CASE EVENT DATE: 201608
